FAERS Safety Report 19111201 (Version 1)
Quarter: 2021Q2

REPORT INFORMATION
  Report Type: Spontaneous
  Country: NL (occurrence: NL)
  Receive Date: 20210409
  Receipt Date: 20210409
  Transmission Date: 20210717
  Serious: Yes (Other)
  Sender: FDA-Public Use
  Company Number: NL-AUROBINDO-AUR-APL-2021-014743

PATIENT
  Age: 43 Year
  Sex: Female
  Weight: 53 kg

DRUGS (1)
  1. BISOPROLOL FILM?COATED TABLETS 2.5MG [Suspect]
     Active Substance: BISOPROLOL FUMARATE
     Indication: PALPITATIONS
     Dosage: 2 X PER DAG 1 STUK
     Route: 065
     Dates: start: 2019, end: 20210214

REACTIONS (2)
  - Psoriasis [Recovered/Resolved]
  - Porokeratosis [Recovered/Resolved]

NARRATIVE: CASE EVENT DATE: 20190601
